FAERS Safety Report 9741519 (Version 1)
Quarter: 2013Q4

REPORT INFORMATION
  Report Type: Spontaneous
  Country: MX (occurrence: MX)
  Receive Date: 20131209
  Receipt Date: 20131209
  Transmission Date: 20140711
  Serious: Yes (Other)
  Sender: FDA-Public Use
  Company Number: MX-ROCHE-1310302

PATIENT
  Age: 57 Year
  Sex: 0

DRUGS (3)
  1. AVASTIN [Suspect]
     Indication: BREAST CANCER METASTATIC
     Route: 065
     Dates: start: 20100514, end: 20110404
  2. CARBOPLATIN [Concomitant]
     Indication: BREAST CANCER METASTATIC
     Route: 065
     Dates: start: 20100514, end: 20110404
  3. DOCETAXEL [Concomitant]
     Indication: BREAST CANCER METASTATIC
     Route: 065
     Dates: start: 20100514, end: 20110404

REACTIONS (1)
  - Toxicity to various agents [Unknown]
